FAERS Safety Report 6858781-3 (Version None)
Quarter: 2010Q3

REPORT INFORMATION
  Report Type: 
  Country: None (occurrence: None)
  Receive Date: 20100719
  Receipt Date: 20080213
  Transmission Date: 20110219
  Serious: No
  Sender: FDA-Public Use
  Company Number: US-PFIZER INC-2008015310

PATIENT
  Sex: Female
  Weight: 49.4 kg

DRUGS (4)
  1. CHANTIX [Suspect]
     Indication: SMOKING CESSATION THERAPY
     Dates: start: 20080204
  2. DETROL LA [Concomitant]
     Indication: HYPERTONIC BLADDER
  3. EFFEXOR [Concomitant]
     Indication: ANXIETY
  4. CILEST [Concomitant]

REACTIONS (3)
  - NAUSEA [None]
  - SOMNOLENCE [None]
  - VOMITING [None]
